FAERS Safety Report 4964722-6 (Version None)
Quarter: 2006Q2

REPORT INFORMATION
  Report Type: 
  Country: None (occurrence: None)
  Receive Date: 20060406
  Receipt Date: 20060330
  Transmission Date: 20061013
  Serious: Yes (Hospitalization)
  Sender: FDA-Public Use
  Company Number: GB-MERCK-0603GBR00161

PATIENT
  Age: 76 Year
  Sex: Female
  Weight: 83 kg

DRUGS (9)
  1. ZETIA [Suspect]
     Indication: BLOOD CHOLESTEROL INCREASED
     Route: 048
     Dates: start: 20051207, end: 20051210
  2. ISOSORBIDE MONONITRATE [Concomitant]
     Route: 048
  3. ACETAMINOPHEN [Concomitant]
     Route: 048
  4. ASPIRIN [Concomitant]
     Route: 048
  5. PRINIVIL [Concomitant]
     Route: 048
  6. AMLODIPINE BESYLATE [Concomitant]
     Route: 048
  7. FLUVASTATIN SODIUM [Concomitant]
     Route: 048
  8. ANASTROZOLE [Concomitant]
     Route: 048
  9. WARFARIN [Concomitant]
     Route: 065

REACTIONS (1)
  - RECTAL HAEMORRHAGE [None]
